FAERS Safety Report 11113248 (Version 1)
Quarter: 2015Q2

REPORT INFORMATION
  Report Type: Spontaneous
  Country: US (occurrence: None)
  Receive Date: 20150504
  Receipt Date: 20150504
  Transmission Date: 20150821
  Serious: Yes (Other)
  Sender: FDA-Public Use
  Company Number: 1421726

PATIENT
  Age: 52 Year
  Sex: Male
  Weight: 58.97 kg

DRUGS (5)
  1. TAXOL [Suspect]
     Active Substance: PACLITAXEL
     Indication: PRODUCT USED FOR UNKNOWN INDICATION
     Dates: start: 20140507
  2. NEUPOGEN (FILGRASTIM) [Suspect]
     Active Substance: FILGRASTIM
     Indication: PRODUCT USED FOR UNKNOWN INDICATION
  3. CARBOPLATIN (CARBOPLATIN) [Suspect]
     Active Substance: CARBOPLATIN
     Indication: PRODUCT USED FOR UNKNOWN INDICATION
     Dates: start: 20140507
  4. AVASTIN [Suspect]
     Active Substance: BEVACIZUMAB
     Indication: PRODUCT USED FOR UNKNOWN INDICATION
     Dates: start: 20140507
  5. ADVAIR DISKUS [Suspect]
     Active Substance: FLUTICASONE PROPIONATE\SALMETEROL XINAFOATE
     Indication: PRODUCT USED FOR UNKNOWN INDICATION

REACTIONS (5)
  - Pericardial effusion [None]
  - Anxiety [None]
  - Dysgeusia [None]
  - Lung consolidation [None]
  - Lung adenocarcinoma [None]
